FAERS Safety Report 8499428-2 (Version None)
Quarter: 2012Q3

REPORT INFORMATION
  Report Type: 
  Country: None (occurrence: None)
  Receive Date: 20120710
  Receipt Date: 20120628
  Transmission Date: 20120928
  Serious: Yes (Other)
  Sender: FDA-Public Use
  Company Number: JP-VERTEX PHARMACEUTICALS INC.-AE-2012-009781

PATIENT
  Age: 39 Year
  Sex: Male

DRUGS (10)
  1. ONON [Concomitant]
     Route: 048
     Dates: start: 20120410
  2. TELAVIC (TELAPREVIR) [Suspect]
     Indication: HEPATITIS C
     Route: 048
     Dates: start: 20120313, end: 20120604
  3. RIBAVIRIN [Concomitant]
     Route: 048
     Dates: start: 20120424
  4. PEGINTERFERON ALFA-2B [Concomitant]
     Indication: HEPATITIS C
     Route: 058
     Dates: start: 20120313
  5. FAMOTIDINE [Concomitant]
     Route: 048
     Dates: start: 20120313
  6. RIBAVIRIN [Concomitant]
     Indication: HEPATITIS C
     Route: 048
     Dates: start: 20120313, end: 20120423
  7. ALLOPURINOL [Concomitant]
     Route: 048
  8. ADVAIR DISKUS 100/50 [Concomitant]
     Route: 055
     Dates: end: 20120511
  9. MEDICON [Concomitant]
     Route: 048
     Dates: start: 20120410
  10. ASTHPHYLLIN [Concomitant]
     Route: 048
     Dates: start: 20120410

REACTIONS (1)
  - WHITE BLOOD CELL COUNT DECREASED [None]
